FAERS Safety Report 14226506 (Version 2)
Quarter: 2017Q4

REPORT INFORMATION
  Report Type: Spontaneous
  Country: US (occurrence: US)
  Receive Date: 20171127
  Receipt Date: 20171208
  Transmission Date: 20180321
  Serious: Yes (Other)
  Sender: FDA-Public Use
  Company Number: US-PFIZER INC-2017501351

PATIENT
  Age: 76 Year
  Sex: Female
  Weight: 90.7 kg

DRUGS (3)
  1. LYRICA [Suspect]
     Active Substance: PREGABALIN
     Indication: PAIN
  2. LYRICA [Suspect]
     Active Substance: PREGABALIN
     Indication: NEUROPATHY PERIPHERAL
  3. LYRICA [Suspect]
     Active Substance: PREGABALIN
     Indication: FIBROMYALGIA
     Dosage: 50 MG, TWICE DAILY
     Route: 048

REACTIONS (8)
  - Fall [Unknown]
  - Drug ineffective [Unknown]
  - Back injury [Unknown]
  - Haemorrhage [Unknown]
  - Skeletal injury [Unknown]
  - Joint injury [Unknown]
  - Limb injury [Unknown]
  - Back pain [Unknown]
